FAERS Safety Report 13905742 (Version 6)
Quarter: 2019Q3

REPORT INFORMATION
  Report Type: Report from Study
  Country: US (occurrence: US)
  Receive Date: 20170825
  Receipt Date: 20190723
  Transmission Date: 20191004
  Serious: Yes (Other)
  Sender: FDA-Public Use
  Company Number: PHHY2017US043183

PATIENT
  Age: 50 Year
  Sex: Female

DRUGS (2)
  1. AMANTADINE. [Concomitant]
     Active Substance: AMANTADINE HYDROCHLORIDE
     Indication: FATIGUE
     Dosage: UNK
     Route: 065
     Dates: start: 20160113
  2. GILENYA [Suspect]
     Active Substance: FINGOLIMOD HYDROCHLORIDE
     Indication: MULTIPLE SCLEROSIS
     Dosage: UNK, QD
     Route: 048

REACTIONS (26)
  - Bradycardia [Unknown]
  - Lymphocyte count decreased [Unknown]
  - Hypoacusis [Recovered/Resolved]
  - Muscular weakness [Unknown]
  - Paraesthesia [Recovered/Resolved]
  - Dizziness [Unknown]
  - Coordination abnormal [Unknown]
  - Nausea [Recovered/Resolved]
  - Vertigo [Unknown]
  - Fall [Recovered/Resolved]
  - Fall [Unknown]
  - White blood cell count decreased [Unknown]
  - Muscle spasms [Unknown]
  - Depression [Unknown]
  - Pain in extremity [Unknown]
  - Dry mouth [Unknown]
  - Fatigue [Unknown]
  - Carcinoid tumour [Recovered/Resolved]
  - Multiple sclerosis relapse [Recovered/Resolved]
  - Acute sinusitis [Recovered/Resolved]
  - Constipation [Unknown]
  - Dyskinesia [Unknown]
  - Back pain [Unknown]
  - Cholelithiasis [Recovered/Resolved]
  - Dysarthria [Recovered/Resolved]
  - Vomiting [Recovered/Resolved]

NARRATIVE: CASE EVENT DATE: 20160113
